FAERS Safety Report 8461679-0 (Version None)
Quarter: 2012Q2

REPORT INFORMATION
  Report Type: 
  Country: None (occurrence: None)
  Receive Date: 20120625
  Receipt Date: 20120621
  Transmission Date: 20120825
  Serious: Yes (Death, Hospitalization)
  Sender: FDA-Public Use
  Company Number: PHEH2012US006612

PATIENT
  Sex: Male

DRUGS (10)
  1. GLEEVEC [Suspect]
     Indication: CHRONIC MYELOID LEUKAEMIA
     Dosage: 400 MG, QD
     Route: 048
     Dates: start: 20100119
  2. NEXIUM [Concomitant]
     Dosage: 40 MG, QD
     Route: 048
  3. MELATONIN [Concomitant]
     Dosage: 3 MG, UNK
  4. LISINOPRIL [Concomitant]
     Dosage: 2.5 MG, QD
  5. GLEEVEC [Suspect]
     Dosage: 300 MG, DAILY
     Route: 048
  6. ZINC SULFATE [Concomitant]
     Dosage: 50 MG, QD
  7. ASPIRIN [Concomitant]
     Dosage: 81 MG, QD
     Route: 048
  8. LASIX [Concomitant]
     Dosage: 20 MG, QD
     Route: 048
  9. METOPROLOL TARTRATE [Concomitant]
     Dosage: 25 MG, 1/2 TWICE DAILY
     Route: 048
  10. MIRTAZAPINE [Concomitant]
     Dosage: 15 MG, QD

REACTIONS (3)
  - HYPOGLYCAEMIA [None]
  - DEATH [None]
  - MENTAL STATUS CHANGES [None]
